FAERS Safety Report 6148611-X (Version None)
Quarter: 2009Q2

REPORT INFORMATION
  Report Type: 
  Country: None (occurrence: None)
  Receive Date: 20090406
  Receipt Date: 20090406
  Transmission Date: 20091009
  Serious: Yes (Hospitalization)
  Sender: FDA-Public Use
  Company Number: None

PATIENT
  Age: 58 Year
  Weight: 81.6 kg

DRUGS (4)
  1. ERBITUX [Suspect]
     Indication: TONGUE NEOPLASM MALIGNANT STAGE UNSPECIFIED
     Dosage: 250 MG/M2 WEEKLY IV DRIP
     Route: 041
     Dates: start: 20090223
  2. TAXOL [Concomitant]
  3. CARBOPLATIN [Concomitant]
  4. XRT [Concomitant]

REACTIONS (2)
  - DEHYDRATION [None]
  - PYREXIA [None]
